FAERS Safety Report 9311843 (Version 1)
Quarter: 2013Q2

REPORT INFORMATION
  Report Type: Report from Study
  Country: CA (occurrence: CA)
  Receive Date: 20130528
  Receipt Date: 20130528
  Transmission Date: 20140414
  Serious: Yes (Other)
  Sender: FDA-Public Use
  Company Number: PHHO2013CA006832

PATIENT
  Age: 29 Year
  Sex: Female

DRUGS (6)
  1. SOM230 [Suspect]
     Dosage: 600 UG, BID
     Dates: start: 20120621, end: 20130129
  2. METFORMIN [Concomitant]
     Indication: DIABETES MELLITUS
     Dosage: 500 MG, UNK
     Dates: start: 20120328, end: 20130129
  3. METFORMIN [Concomitant]
     Dosage: UNK
     Dates: start: 20130131
  4. GLICLAZIDE [Concomitant]
     Indication: DIABETES MELLITUS
     Dosage: 120 MG, QD
     Dates: start: 20120705
  5. CABERGOLINE [Concomitant]
     Indication: PITUITARY-DEPENDENT CUSHING^S SYNDROME
     Dosage: 0.5 MG, UNK
     Dates: start: 20120726
  6. L-THYROXIN [Concomitant]
     Indication: HYPOTHYROIDISM
     Dosage: 20 MG, QD
     Dates: start: 20090113

REACTIONS (2)
  - Cellulitis staphylococcal [Not Recovered/Not Resolved]
  - Diabetes mellitus [Unknown]
